FAERS Safety Report 8594264-0 (Version None)
Quarter: 2012Q3

REPORT INFORMATION
  Report Type: 
  Country: None (occurrence: None)
  Receive Date: 20120815
  Receipt Date: 20120808
  Transmission Date: 20120928
  Serious: Yes (Other)
  Sender: FDA-Public Use
  Company Number: JP-MERCK-2012SP036760

PATIENT

DRUGS (10)
  1. REBETOL [Suspect]
     Indication: HEPATITIS C
     Dosage: 600 MG, QD
     Route: 048
     Dates: start: 20120416, end: 20120430
  2. RABEPRAZOLE SODIUM [Concomitant]
     Route: 048
  3. MUCOSTA [Concomitant]
     Route: 048
  4. PEGINTERFERON ALFA-2B [Suspect]
     Indication: HEPATITIS C
     Dosage: 1.28 ?G/KG, QW
     Route: 058
     Dates: start: 20120416
  5. REBETOL [Suspect]
     Dosage: 200 MG, QD
     Route: 048
     Dates: start: 20120501
  6. PRIMPERAN TAB [Concomitant]
     Indication: HEPATITIS C
     Dosage: FORMULATION POR
     Route: 048
     Dates: start: 20120426
  7. TELAVIC [Suspect]
     Indication: HEPATITIS C
     Dosage: 1500 MG QD
     Route: 048
     Dates: start: 20120416, end: 20120422
  8. TELAVIC [Suspect]
     Dosage: 1000 MG, QD
     Route: 048
     Dates: start: 20120423, end: 20120617
  9. TELAVIC [Suspect]
     Dosage: 500 MG, QD
     Route: 048
  10. KETOPROFEN [Concomitant]
     Route: 062

REACTIONS (4)
  - RENAL IMPAIRMENT [None]
  - CATARACT [None]
  - RETINAL VASCULITIS [None]
  - ANAEMIA [None]
